FAERS Safety Report 5565046-9 (Version None)
Quarter: 2007Q4

REPORT INFORMATION
  Report Type: 
  Country: None (occurrence: None)
  Receive Date: 20071218
  Receipt Date: 20071210
  Transmission Date: 20080405
  Serious: Yes (Other)
  Sender: FDA-Public Use
  Company Number: JP-BRISTOL-MYERS SQUIBB COMPANY-14016364

PATIENT
  Age: 58 Year
  Sex: Female

DRUGS (6)
  1. ARIPIPRAZOLE [Suspect]
     Indication: SCHIZOPHRENIA, PARANOID TYPE
     Dosage: 18MG(04AUG-28SEP'07),DECREASED TO 12MG/DAY(29SEP-02OCT'07),FURTHER DECREASED TO 6MG/DAY (3-9OCT'07).
     Route: 048
     Dates: start: 20070804, end: 20071009
  2. RISPERIDONE [Concomitant]
     Indication: SCHIZOPHRENIA, PARANOID TYPE
     Dosage: 4MG(UNK-24AUG07),2MG(25AUG-7SEP07),4MG(23SEP-28SEP07),6 MG(29SEP-CONTINUING).
     Route: 048
     Dates: start: 20070923, end: 20070928
  3. ALPRAZOLAM [Concomitant]
     Indication: SCHIZOPHRENIA, PARANOID TYPE
     Route: 048
  4. BROTIZOLAM [Concomitant]
     Indication: SCHIZOPHRENIA, PARANOID TYPE
     Route: 048
  5. FLUNITRAZEPAM [Concomitant]
     Indication: SCHIZOPHRENIA, PARANOID TYPE
     Route: 048
  6. NITRAZEPAM [Concomitant]
     Indication: SCHIZOPHRENIA, PARANOID TYPE
     Route: 048

REACTIONS (1)
  - PSYCHIATRIC SYMPTOM [None]
